FAERS Safety Report 9672955 (Version 1)
Quarter: 2013Q4

REPORT INFORMATION
  Report Type: Spontaneous
  Country: US (occurrence: US)
  Receive Date: 20131106
  Receipt Date: 20131106
  Transmission Date: 20140711
  Serious: No
  Sender: FDA-Public Use
  Company Number: US-AMGEN-USASP2013069336

PATIENT
  Age: 61 Year
  Sex: Male

DRUGS (7)
  1. ENBREL [Suspect]
     Indication: PRODUCT USED FOR UNKNOWN INDICATION
     Dosage: UNK
     Route: 065
  2. HUMIRA [Suspect]
     Indication: PSORIASIS
     Dosage: 40 MG, UNK ONE IN TWO WEEK
     Route: 058
     Dates: start: 201307
  3. FISH OIL [Concomitant]
     Indication: VITAMIN SUPPLEMENTATION
     Dosage: UNK
  4. ONE A DAY MENS [Concomitant]
     Indication: VITAMIN SUPPLEMENTATION
     Dosage: UNK
  5. DOXEPIN                            /00138002/ [Concomitant]
     Indication: PSORIASIS
     Dosage: UNK
  6. PRILOSEC                           /00661203/ [Concomitant]
     Indication: DYSPEPSIA
     Dosage: UNK
  7. NORVASC [Concomitant]
     Indication: HYPERTENSION
     Dosage: UNK

REACTIONS (1)
  - Psoriasis [Unknown]
